FAERS Safety Report 20984894 (Version 1)
Quarter: 2022Q2

REPORT INFORMATION
  Report Type: Spontaneous
  Country: US (occurrence: None)
  Receive Date: 20220621
  Receipt Date: 20220621
  Transmission Date: 20220721
  Serious: No
  Sender: FDA-Public Use
  Company Number: US-ROCHE-3025150

PATIENT

DRUGS (2)
  1. XELODA [Suspect]
     Active Substance: CAPECITABINE
     Indication: Product used for unknown indication
     Route: 048
  2. XELODA [Suspect]
     Active Substance: CAPECITABINE
     Route: 048

REACTIONS (2)
  - Product temperature excursion issue [Unknown]
  - No adverse event [Unknown]
